FAERS Safety Report 24267042 (Version 1)
Quarter: 2024Q3

REPORT INFORMATION
  Report Type: Spontaneous
  Country: FR (occurrence: FR)
  Receive Date: 20240830
  Receipt Date: 20240830
  Transmission Date: 20241017
  Serious: Yes (Hospitalization)
  Sender: AUROBINDO
  Company Number: FR-AFSSAPS-MP2024001272

PATIENT
  Age: 84 Year
  Sex: Female
  Weight: 53 kg

DRUGS (5)
  1. BISOPROLOL [Suspect]
     Active Substance: BISOPROLOL\BISOPROLOL FUMARATE
     Indication: Cardiac failure
     Dosage: UNK
     Route: 048
     Dates: start: 20240712, end: 20240729
  2. AUGMENTIN [Suspect]
     Active Substance: AMOXICILLIN\CLAVULANATE POTASSIUM
     Indication: Product used for unknown indication
     Dosage: UNK
     Route: 065
     Dates: start: 20240717, end: 20240721
  3. ELIQUIS [Suspect]
     Active Substance: APIXABAN
     Indication: Cardiac failure
     Dosage: UNK
     Route: 048
     Dates: start: 20240716, end: 20240729
  4. LANSOPRAZOLE [Suspect]
     Active Substance: LANSOPRAZOLE
     Indication: Product used for unknown indication
     Dosage: UNK (15MG/J)
     Route: 048
     Dates: start: 20240712, end: 20240729
  5. SYMBICORT [Concomitant]
     Active Substance: BUDESONIDE\FORMOTEROL FUMARATE DIHYDRATE
     Indication: Chronic obstructive pulmonary disease
     Dosage: 4 DOSAGE FORM, ONCE A DAY
     Dates: start: 20240712, end: 20240729

REACTIONS (1)
  - Rash scarlatiniform [Recovering/Resolving]

NARRATIVE: CASE EVENT DATE: 20240725
